FAERS Safety Report 10174621 (Version 1)
Quarter: 2014Q2

REPORT INFORMATION
  Report Type: Spontaneous
  Country: US (occurrence: None)
  Receive Date: 20140514
  Receipt Date: 20140514
  Transmission Date: 20141212
  Serious: Yes (Life-Threatening, Hospitalization, Disabling, Other)
  Sender: FDA-Public Use
  Company Number: None

PATIENT
  Age: 54 Year
  Sex: Male
  Weight: 68.95 kg

DRUGS (1)
  1. AMIODARONE, UNKNOWN, UNKNOWN [Suspect]
     Indication: ATRIAL FIBRILLATION
     Dates: start: 20131025, end: 20131111

REACTIONS (15)
  - Myopathy [None]
  - Incoherent [None]
  - Pulmonary toxicity [None]
  - Pulmonary fibrosis [None]
  - Asphyxia [None]
  - Coma [None]
  - Cardiac arrest [None]
  - Renal failure [None]
  - Vision blurred [None]
  - Skin disorder [None]
  - Unevaluable event [None]
  - Dyspnoea [None]
  - Asthenia [None]
  - Transient ischaemic attack [None]
  - Cerebrovascular accident [None]
